FAERS Safety Report 22192955 (Version 1)
Quarter: 2023Q2

REPORT INFORMATION
  Report Type: Spontaneous
  Country: US (occurrence: None)
  Receive Date: 20230410
  Receipt Date: 20230410
  Transmission Date: 20230721
  Serious: Yes (unspecified)
  Sender: FDA-Public Use
  Company Number: None

PATIENT
  Age: 38 Year
  Sex: Female

DRUGS (2)
  1. .DELTA.8-TETRAHYDROCANNABINOL\HERBALS [Suspect]
     Active Substance: .DELTA.8-TETRAHYDROCANNABINOL\HERBALS
  2. HERBALS\TETRAHYDROCANNABIPHORAL [Suspect]
     Active Substance: HERBALS\TETRAHYDROCANNABIPHORAL

REACTIONS (2)
  - Loss of consciousness [None]
  - Alcohol use [None]

NARRATIVE: CASE EVENT DATE: 20230326
